FAERS Safety Report 8308474-0 (Version None)
Quarter: 2012Q2

REPORT INFORMATION
  Report Type: 
  Country: None (occurrence: None)
  Receive Date: 20120424
  Receipt Date: 20120415
  Transmission Date: 20120825
  Serious: Yes (Hospitalization, Other)
  Sender: FDA-Public Use
  Company Number: DE-JNJFOC-20120406807

PATIENT
  Sex: Male
  Weight: 75 kg

DRUGS (6)
  1. RIVAROXABAN [Suspect]
     Indication: TACHYARRHYTHMIA
     Route: 048
     Dates: start: 20120217, end: 20120301
  2. RIVAROXABAN [Suspect]
     Indication: ATRIAL FIBRILLATION
     Route: 048
     Dates: start: 20111101, end: 20120106
  3. RIVAROXABAN [Suspect]
     Route: 048
     Dates: start: 20111101, end: 20120106
  4. RIVAROXABAN [Suspect]
     Route: 048
     Dates: start: 20120217, end: 20120301
  5. MESALAZIN [Concomitant]
     Dates: end: 20120228
  6. ENOXAPARIN SODIUM [Suspect]
     Indication: TACHYARRHYTHMIA
     Dates: start: 20120201, end: 20120224

REACTIONS (5)
  - HAEMATURIA [None]
  - BLADDER TAMPONADE [None]
  - HAEMORRHAGE [None]
  - HAEMOGLOBIN ABNORMAL [None]
  - PROSTATIC HAEMORRHAGE [None]
